FAERS Safety Report 23343276 (Version 2)
Quarter: 2024Q1

REPORT INFORMATION
  Report Type: Report from Study
  Country: CN (occurrence: CN)
  Receive Date: 20231227
  Receipt Date: 20240103
  Transmission Date: 20240409
  Serious: Yes (Hospitalization)
  Sender: FDA-Public Use
  Company Number: CN-PFIZER INC-PV202300196581

PATIENT
  Age: 18 Year
  Sex: Female
  Weight: 49 kg

DRUGS (9)
  1. CYTARABINE [Suspect]
     Active Substance: CYTARABINE
     Indication: Acute myeloid leukaemia
     Dosage: 1500 MG, 1X/DAY (QD)
     Route: 041
     Dates: start: 20231111, end: 20231115
  2. INVESTIGATIONAL PRODUCT [Suspect]
     Active Substance: INVESTIGATIONAL PRODUCT
     Indication: Acute myeloid leukaemia
     Dosage: UNK UNK, 1X/DAY
     Route: 041
     Dates: start: 20231110, end: 20231110
  3. INVESTIGATIONAL PRODUCT [Suspect]
     Active Substance: INVESTIGATIONAL PRODUCT
     Dosage: UNK UNK, 2X/DAY (Q12H)
     Route: 041
     Dates: start: 20231111, end: 20231117
  4. MITOXANTRONE [Suspect]
     Active Substance: MITOXANTRONE HYDROCHLORIDE
     Indication: Acute myeloid leukaemia
     Dosage: 9.0 MG, 1X/DAY (25/12.5 MILLIGRAM PER MILLILITRE)
     Route: 041
     Dates: start: 20231111, end: 20231115
  5. ETOPOSIDE [Suspect]
     Active Substance: ETOPOSIDE
     Indication: Acute myeloid leukaemia
     Dosage: 150 MG, 1X/DAY (0.1/5 GRAM PER MILLILITRE)
     Route: 041
     Dates: start: 20231111, end: 20231113
  6. CONTEZOLID [Concomitant]
     Active Substance: CONTEZOLID
     Dosage: UNK
     Dates: start: 20231111
  7. OPRELVEKIN [Concomitant]
     Active Substance: OPRELVEKIN
     Dosage: HUMAN INTERLEUKIN-11
     Dates: start: 20231118, end: 20231204
  8. GRANULOCYTE COLONY-STIMULATING FACTOR NOS [Concomitant]
     Active Substance: GRANULOCYTE COLONY-STIMULATING FACTOR NOS
     Dosage: HUMAN GRANULOCYTE COLONY-STIMULATING FACTOR
     Dates: start: 20231119, end: 20231203
  9. OMEPRAZOLE [Concomitant]
     Active Substance: OMEPRAZOLE
     Dosage: DELAYED RELEASE, ENTERIC CAPSULE
     Dates: start: 20231110, end: 20231205

REACTIONS (1)
  - Fungal sepsis [Not Recovered/Not Resolved]

NARRATIVE: CASE EVENT DATE: 20231120
